FAERS Safety Report 10404356 (Version 3)
Quarter: 2014Q3

REPORT INFORMATION
  Report Type: Report from Study
  Country: BR (occurrence: BR)
  Receive Date: 20140823
  Receipt Date: 20140908
  Transmission Date: 20150326
  Serious: Yes (Life-Threatening, Hospitalization, Disabling, Other)
  Sender: FDA-Public Use
  Company Number: BR-ABBVIE-08P-020-0439512-00

PATIENT
  Sex: Male
  Weight: 64 kg

DRUGS (18)
  1. ASPIRIN. [Concomitant]
     Active Substance: ASPIRIN
     Indication: TACHYCARDIA
     Route: 048
  2. SIMVASTATIN. [Concomitant]
     Active Substance: SIMVASTATIN
     Indication: PRODUCT USED FOR UNKNOWN INDICATION
     Route: 048
  3. CAPTOPRIL. [Concomitant]
     Active Substance: CAPTOPRIL
     Indication: BLOOD PRESSURE MANAGEMENT
     Route: 048
     Dates: start: 2000
  4. METOPROLOL TARTRATE. [Concomitant]
     Active Substance: METOPROLOL TARTRATE
     Indication: HYPERTENSION
     Route: 048
     Dates: end: 20080123
  5. ENDOFOLIN [Concomitant]
     Active Substance: FOLIC ACID
     Indication: IMMUNODEFICIENCY
     Route: 048
     Dates: end: 200712
  6. NIFEDIPINE. [Concomitant]
     Active Substance: NIFEDIPINE
     Indication: PRODUCT USED FOR UNKNOWN INDICATION
     Route: 048
  7. HIDROMED [Concomitant]
     Active Substance: HYDROCHLOROTHIAZIDE
     Indication: DIURETIC THERAPY
     Route: 048
     Dates: start: 2000
  8. LEFLUNOMIDE. [Concomitant]
     Active Substance: LEFLUNOMIDE
     Indication: RHEUMATOID ARTHRITIS
  9. NIFEDIPINE. [Concomitant]
     Active Substance: NIFEDIPINE
     Route: 048
     Dates: start: 2000
  10. AAS [Concomitant]
     Active Substance: ASPIRIN
     Indication: BLOOD PRESSURE MANAGEMENT
     Route: 048
     Dates: start: 2000
  11. PROPRANOLOL [Concomitant]
     Active Substance: PROPRANOLOL\PROPRANOLOL HYDROCHLORIDE
     Indication: HYPERTENSION
     Dosage: ONE AND A HALF TABLETS EVERY 8 HOURS
     Route: 048
  12. UNKNOWN MEDICATION [Concomitant]
     Active Substance: UNSPECIFIED INGREDIENT
     Indication: HYPERTENSION
     Route: 048
     Dates: end: 20080118
  13. PROPRANOLOL [Concomitant]
     Active Substance: PROPRANOLOL\PROPRANOLOL HYDROCHLORIDE
     Route: 048
     Dates: start: 2000
  14. HUMIRA [Suspect]
     Active Substance: ADALIMUMAB
     Indication: RHEUMATOID ARTHRITIS
     Route: 058
     Dates: start: 20071126
  15. SERUM + UNKNOWN MEDICATION [Concomitant]
     Indication: RELAXATION THERAPY
  16. CYCLOBENZAPRINE HYDROCHLORIDE (MUSCULARE) [Concomitant]
     Indication: MUSCLE RELAXANT THERAPY
     Route: 048
     Dates: start: 201312
  17. SERUM + UNKNOWN MEDICATION [Concomitant]
     Indication: SLEEP DISORDER THERAPY
  18. CAPTOPRIL. [Concomitant]
     Active Substance: CAPTOPRIL
     Indication: HYPERTENSION
     Route: 048

REACTIONS (6)
  - Monoplegia [Not Recovered/Not Resolved]
  - Speech disorder [Recovered/Resolved]
  - Ischaemic stroke [Recovering/Resolving]
  - Movement disorder [Not Recovered/Not Resolved]
  - Hypertension [Recovered/Resolved]
  - Cerebrovascular accident [Recovered/Resolved with Sequelae]

NARRATIVE: CASE EVENT DATE: 2008
